FAERS Safety Report 9459313 (Version 1)
Quarter: 2013Q3

REPORT INFORMATION
  Report Type: Report from Study
  Country: US (occurrence: US)
  Receive Date: 20130815
  Receipt Date: 20130815
  Transmission Date: 20140515
  Serious: Yes (Death)
  Sender: FDA-Public Use
  Company Number: US-ROCHE-1262032

PATIENT
  Age: 50 Year
  Sex: Male

DRUGS (2)
  1. BEVACIZUMAB [Suspect]
     Indication: COLON CANCER
     Route: 065
     Dates: start: 20120827
  2. BEVACIZUMAB [Suspect]
     Indication: COLORECTAL CANCER

REACTIONS (1)
  - Death [Fatal]
